FAERS Safety Report 7151917-9 (Version None)
Quarter: 2010Q4

REPORT INFORMATION
  Report Type: 
  Country: None (occurrence: None)
  Receive Date: 20101210
  Receipt Date: 20101129
  Transmission Date: 20110411
  Serious: Yes (Hospitalization)
  Sender: FDA-Public Use
  Company Number: NL-GENENTECH-310657

PATIENT
  Sex: Male
  Weight: 106 kg

DRUGS (12)
  1. RITUXIMAB [Suspect]
     Indication: DIFFUSE LARGE B-CELL LYMPHOMA
     Dosage: 750 MG, UNK
     Route: 042
     Dates: start: 20101029
  2. PREDNISONE [Suspect]
     Indication: DIFFUSE LARGE B-CELL LYMPHOMA
     Dosage: 1000 MG, UNK
     Route: 048
     Dates: start: 20101029
  3. CYCLOPHOSPHAMIDE [Suspect]
     Indication: DIFFUSE LARGE B-CELL LYMPHOMA
     Dosage: 1700 MG, UNK
     Route: 042
     Dates: start: 20101029
  4. DOXORUBICIN HCL [Suspect]
     Indication: DIFFUSE LARGE B-CELL LYMPHOMA
     Dosage: 115 MG, UNK
     Route: 042
     Dates: start: 20101029
  5. VINCRISTINE [Suspect]
     Indication: DIFFUSE LARGE B-CELL LYMPHOMA
     Dosage: 2 MG, UNK
     Route: 042
     Dates: start: 20101029
  6. G-CSF [Suspect]
     Indication: DIFFUSE LARGE B-CELL LYMPHOMA
     Dosage: 6 MG, UNK
     Route: 058
     Dates: start: 20101101
  7. ACENOCOUMAROL [Concomitant]
     Indication: CARDIAC FAILURE
     Dosage: UNK
     Route: 048
  8. CARVEDILOL [Concomitant]
     Indication: CARDIAC FAILURE
     Dosage: UNK
     Route: 048
  9. FUROSEMIDE [Concomitant]
     Indication: CARDIAC FAILURE
     Dosage: UNK
     Route: 048
  10. LANOXIN [Concomitant]
     Indication: CARDIAC FAILURE
     Dosage: UNK
     Route: 048
  11. SPIRONOLACTONE [Concomitant]
     Indication: CARDIAC FAILURE
     Dosage: UNK
     Route: 048
  12. METFORMIN [Concomitant]
     Indication: DIABETES MELLITUS
     Dosage: UNK
     Route: 048

REACTIONS (1)
  - MELAENA [None]
